FAERS Safety Report 19903133 (Version 3)
Quarter: 2022Q1

REPORT INFORMATION
  Report Type: Spontaneous
  Country: IN (occurrence: IN)
  Receive Date: 20211001
  Receipt Date: 20220324
  Transmission Date: 20220423
  Serious: Yes (Life-Threatening, Hospitalization, Other)
  Sender: FDA-Public Use
  Company Number: None

PATIENT

DRUGS (27)
  1. OLANZAPINE [Suspect]
     Active Substance: OLANZAPINE
     Indication: Tremor
     Dosage: UNK
     Route: 065
  2. OLANZAPINE [Suspect]
     Active Substance: OLANZAPINE
     Indication: Restlessness
  3. OLANZAPINE [Suspect]
     Active Substance: OLANZAPINE
     Indication: Psychotic disorder
  4. ESCITALOPRAM [Suspect]
     Active Substance: ESCITALOPRAM OXALATE
     Indication: Head titubation
     Dosage: UNK
     Route: 065
  5. ESCITALOPRAM [Suspect]
     Active Substance: ESCITALOPRAM OXALATE
     Indication: Tremor
  6. ESCITALOPRAM [Suspect]
     Active Substance: ESCITALOPRAM OXALATE
     Indication: Delusion
  7. ESCITALOPRAM [Suspect]
     Active Substance: ESCITALOPRAM OXALATE
     Indication: Hallucination
  8. ESCITALOPRAM [Suspect]
     Active Substance: ESCITALOPRAM OXALATE
     Indication: Memory impairment
  9. ESCITALOPRAM [Suspect]
     Active Substance: ESCITALOPRAM OXALATE
     Indication: Sleep disorder
  10. AMANTADINE [Suspect]
     Active Substance: AMANTADINE
     Indication: Tremor
     Dosage: UNK
     Route: 065
  11. AMANTADINE [Suspect]
     Active Substance: AMANTADINE
     Indication: Gait disturbance
  12. CLONAZEPAM [Suspect]
     Active Substance: CLONAZEPAM
     Indication: Head titubation
     Dosage: UNK
     Route: 065
  13. CLONAZEPAM [Suspect]
     Active Substance: CLONAZEPAM
     Indication: Tremor
  14. CLONAZEPAM [Suspect]
     Active Substance: CLONAZEPAM
     Indication: Delusion
  15. CLONAZEPAM [Suspect]
     Active Substance: CLONAZEPAM
     Indication: Hallucination
  16. CLONAZEPAM [Suspect]
     Active Substance: CLONAZEPAM
     Indication: Memory impairment
  17. CLONAZEPAM [Suspect]
     Active Substance: CLONAZEPAM
     Indication: Sleep disorder
  18. AMITRIPTYLINE [Suspect]
     Active Substance: AMITRIPTYLINE
     Indication: Head titubation
     Dosage: UNK
     Route: 065
  19. AMITRIPTYLINE [Suspect]
     Active Substance: AMITRIPTYLINE
     Indication: Tremor
  20. AMITRIPTYLINE [Suspect]
     Active Substance: AMITRIPTYLINE
     Indication: Delusion
  21. AMITRIPTYLINE [Suspect]
     Active Substance: AMITRIPTYLINE
     Indication: Hallucination
  22. AMITRIPTYLINE [Suspect]
     Active Substance: AMITRIPTYLINE
     Indication: Memory impairment
  23. AMITRIPTYLINE [Suspect]
     Active Substance: AMITRIPTYLINE
     Indication: Sleep disorder
  24. CARBIDOPA [Suspect]
     Active Substance: CARBIDOPA
     Indication: Tremor
     Dosage: UNK
     Route: 065
  25. CARBIDOPA [Suspect]
     Active Substance: CARBIDOPA
     Indication: Gait disturbance
  26. RASAGILINE [Suspect]
     Active Substance: RASAGILINE
     Indication: Tremor
     Dosage: UNK
     Route: 065
  27. RASAGILINE [Suspect]
     Active Substance: RASAGILINE
     Indication: Gait disturbance

REACTIONS (1)
  - Serotonin syndrome [Recovering/Resolving]
